FAERS Safety Report 23085647 (Version 1)
Quarter: 2023Q4

REPORT INFORMATION
  Report Type: Spontaneous
  Country: NO (occurrence: NO)
  Receive Date: 20231019
  Receipt Date: 20231019
  Transmission Date: 20240110
  Serious: Yes (Hospitalization, Disabling, Other)
  Sender: FDA-Public Use
  Company Number: NO-002147023-NVSC2023NO031550

PATIENT
  Age: 38 Year
  Sex: Female

DRUGS (2)
  1. GILENYA [Suspect]
     Active Substance: FINGOLIMOD HYDROCHLORIDE
     Indication: Multiple sclerosis
     Dosage: 0.5 MG, QD
     Route: 065
     Dates: start: 20171201, end: 201904
  2. GILENYA [Suspect]
     Active Substance: FINGOLIMOD HYDROCHLORIDE
     Indication: Relapsing-remitting multiple sclerosis

REACTIONS (20)
  - Multiple sclerosis [Unknown]
  - Blindness unilateral [Unknown]
  - Hypoaesthesia [Unknown]
  - Dizziness [Unknown]
  - Optic neuritis [Unknown]
  - Depression [Unknown]
  - Poor quality sleep [Unknown]
  - Vomiting [Unknown]
  - Headache [Unknown]
  - Speech disorder [Unknown]
  - Oropharyngeal discomfort [Unknown]
  - Palpitations [Unknown]
  - Fatigue [Unknown]
  - Heart rate abnormal [Unknown]
  - Dyspnoea [Unknown]
  - Chest pain [Unknown]
  - Lymphocyte count decreased [Unknown]
  - COVID-19 [Unknown]
  - Injury [Unknown]
  - Psoriasis [Unknown]

NARRATIVE: CASE EVENT DATE: 20190201
